FAERS Safety Report 6801979-0 (Version None)
Quarter: 2010Q2

REPORT INFORMATION
  Report Type: 
  Country: None (occurrence: None)
  Receive Date: 20100629
  Receipt Date: 20080908
  Transmission Date: 20101027
  Serious: Yes (Other)
  Sender: FDA-Public Use
  Company Number: US-PFIZER INC-2008075562

PATIENT
  Sex: Male

DRUGS (1)
  1. DOSTINEX [Suspect]
     Dosage: .50 MG TWICE A WEEK
     Dates: start: 20000101, end: 20080601

REACTIONS (2)
  - BLOOD PROLACTIN INCREASED [None]
  - CARDIAC VALVE DISEASE [None]
